FAERS Safety Report 14048262 (Version 1)
Quarter: 2017Q4

REPORT INFORMATION
  Report Type: Spontaneous
  Country: US (occurrence: US)
  Receive Date: 20171005
  Receipt Date: 20171005
  Transmission Date: 20180321
  Serious: No
  Sender: FDA-Public Use
  Company Number: US-ELI_LILLY_AND_COMPANY-US201710000381

PATIENT
  Sex: Female

DRUGS (1)
  1. HUMALOG [Suspect]
     Active Substance: INSULIN LISPRO
     Indication: TYPE 1 DIABETES MELLITUS
     Dosage: UNK UNK, UNKNOWN
     Route: 065
     Dates: start: 1997

REACTIONS (5)
  - Maternal exposure during pregnancy [Unknown]
  - Blood glucose decreased [Recovered/Resolved]
  - Blood glucose abnormal [Recovering/Resolving]
  - Incorrect dose administered [Recovered/Resolved]
  - Glycosylated haemoglobin increased [Recovering/Resolving]
